FAERS Safety Report 10056926 (Version 1)
Quarter: 2014Q2

REPORT INFORMATION
  Report Type: Spontaneous
  Country: US (occurrence: US)
  Receive Date: 20140403
  Receipt Date: 20140403
  Transmission Date: 20141212
  Serious: Yes (Other)
  Sender: FDA-Public Use
  Company Number: US-GE HEALTHCARE MEDICAL DIAGNOSTICS-OMPQ-PR-1404S-0351

PATIENT
  Age: 71 Year
  Sex: Male
  Weight: 84.9 kg

DRUGS (2)
  1. OMNIPAQUE [Suspect]
     Indication: LYMPHADENOPATHY
     Route: 042
     Dates: start: 20140321, end: 20140321
  2. OMNIPAQUE [Suspect]
     Indication: DIAGNOSTIC PROCEDURE

REACTIONS (2)
  - Urticaria [Recovered/Resolved]
  - Pruritus [Recovered/Resolved]
